FAERS Safety Report 7414845-7 (Version None)
Quarter: 2011Q2

REPORT INFORMATION
  Report Type: 
  Country: None (occurrence: None)
  Receive Date: 20110414
  Receipt Date: 20110411
  Transmission Date: 20111010
  Serious: Yes (Hospitalization, Disabling, Other)
  Sender: FDA-Public Use
  Company Number: US-PFIZER INC-2011011034

PATIENT
  Sex: Female

DRUGS (3)
  1. KLONOPIN [Concomitant]
     Indication: ANXIETY
     Dosage: UNK
     Dates: start: 20000101, end: 20080101
  2. CHANTIX [Suspect]
     Indication: SMOKING CESSATION THERAPY
     Dosage: STARTER PACK
     Dates: start: 20070221, end: 20071201
  3. XANAX [Concomitant]
     Indication: ANXIETY
     Dosage: UNK
     Dates: end: 20080101

REACTIONS (11)
  - COGNITIVE DISORDER [None]
  - CEREBROVASCULAR ACCIDENT [None]
  - DEPRESSION [None]
  - DIZZINESS [None]
  - HEMIPARESIS [None]
  - LACERATION [None]
  - INTENTIONAL OVERDOSE [None]
  - PANIC ATTACK [None]
  - ANXIETY [None]
  - MOBILITY DECREASED [None]
  - SUICIDE ATTEMPT [None]
